FAERS Safety Report 19006338 (Version 1)
Quarter: 2021Q1

REPORT INFORMATION
  Report Type: Spontaneous
  Country: US (occurrence: US)
  Receive Date: 20210315
  Receipt Date: 20210315
  Transmission Date: 20210420
  Serious: No
  Sender: FDA-Public Use
  Company Number: US-ASTRAZENECA-2021A087764

PATIENT
  Age: 22343 Day
  Sex: Male
  Weight: 88.5 kg

DRUGS (6)
  1. TAMSULOSIN [Concomitant]
     Active Substance: TAMSULOSIN
     Indication: DYSURIA
     Route: 048
  2. ATENOLOL. [Concomitant]
     Active Substance: ATENOLOL
     Indication: BLOOD PRESSURE ABNORMAL
     Route: 048
     Dates: end: 20210222
  3. LISINOPRIL. [Concomitant]
     Active Substance: LISINOPRIL
     Indication: BLOOD PRESSURE ABNORMAL
     Route: 048
     Dates: end: 20210222
  4. VITAMIN D [Concomitant]
     Active Substance: VITAMIN D NOS
     Indication: VITAMIN D DEFICIENCY
     Route: 048
  5. FISH OIL [Concomitant]
     Active Substance: FISH OIL
     Indication: DRY EYE
     Route: 048
  6. FARXIGA [Suspect]
     Active Substance: DAPAGLIFLOZIN PROPANEDIOL
     Indication: BLOOD GLUCOSE DECREASED
     Route: 048
     Dates: start: 20210220, end: 20210221

REACTIONS (3)
  - Pruritus [Not Recovered/Not Resolved]
  - Hypotension [Unknown]
  - Rash [Recovering/Resolving]

NARRATIVE: CASE EVENT DATE: 20210220
